FAERS Safety Report 6064414-9 (Version None)
Quarter: 2009Q1

REPORT INFORMATION
  Report Type: 
  Country: None (occurrence: None)
  Receive Date: 20090130
  Receipt Date: 20090116
  Transmission Date: 20090719
  Serious: Yes (Death)
  Sender: FDA-Public Use
  Company Number: 2009S1000027

PATIENT
  Age: 32 Year
  Sex: Male

DRUGS (3)
  1. METHADONE HCL [Suspect]
     Dosage: ; PO
     Route: 048
     Dates: end: 20070101
  2. OXYCODONE AND ACETAMINOPHEN [Suspect]
     Dosage: ; PO
     Route: 048
     Dates: end: 20070101
  3. ESZOPICLONE [Suspect]
     Dosage: ; PO
     Route: 048
     Dates: end: 20070101

REACTIONS (1)
  - COMPLETED SUICIDE [None]
